FAERS Safety Report 24287983 (Version 2)
Quarter: 2024Q4

REPORT INFORMATION
  Report Type: Report from Study
  Country: US (occurrence: US)
  Receive Date: 20240905
  Receipt Date: 20241025
  Transmission Date: 20250115
  Serious: Yes (Hospitalization)
  Sender: SUNOVION
  Company Number: US-SUNOVION-2024SPA001764

PATIENT

DRUGS (3)
  1. ORGOVYX [Suspect]
     Active Substance: RELUGOLIX
     Indication: Prostate cancer
     Dosage: 480 MG
     Route: 048
     Dates: start: 20240725, end: 20240725
  2. ORGOVYX [Suspect]
     Active Substance: RELUGOLIX
     Dosage: 120 MG, QD
     Route: 048
     Dates: start: 20240726
  3. XTANDI [Concomitant]
     Active Substance: ENZALUTAMIDE
     Dosage: UNK
     Route: 065

REACTIONS (4)
  - Chest discomfort [Unknown]
  - Back pain [Unknown]
  - Vision blurred [Unknown]
  - Incorrect dose administered [Unknown]

NARRATIVE: CASE EVENT DATE: 20241001
